FAERS Safety Report 5331565-3 (Version None)
Quarter: 2007Q2

REPORT INFORMATION
  Report Type: 
  Country: None (occurrence: None)
  Receive Date: 20070522
  Receipt Date: 20070512
  Transmission Date: 20071010
  Serious: Yes (Death, Hospitalization, Other)
  Sender: FDA-Public Use
  Company Number: US-PFIZER INC-2007018909

PATIENT
  Sex: Male
  Weight: 81.6 kg

DRUGS (2)
  1. EXUBERA [Suspect]
     Indication: DIABETES MELLITUS INSULIN-DEPENDENT
     Route: 055
     Dates: start: 20061116, end: 20070225
  2. LANTUS [Concomitant]

REACTIONS (4)
  - BLOOD POTASSIUM DECREASED [None]
  - CARDIAC ARREST [None]
  - CIRCULATORY COLLAPSE [None]
  - HYPOGLYCAEMIA [None]
